FAERS Safety Report 25954243 (Version 2)
Quarter: 2025Q4

REPORT INFORMATION
  Report Type: Report from Study
  Country: US (occurrence: US)
  Receive Date: 20251023
  Receipt Date: 20251024
  Transmission Date: 20260118
  Serious: Yes (Hospitalization, Other)
  Sender: RHYTHM PHARMACEUTICALS
  Company Number: US-Rhythm Pharmaceuticals, Inc.-2022RHM000078

PATIENT

DRUGS (7)
  1. SETMELANOTIDE [Suspect]
     Active Substance: SETMELANOTIDE
     Indication: Laurence-Moon-Bardet-Biedl syndrome
     Dosage: 1 MILLIGRAM, QD
     Route: 065
     Dates: start: 20220813
  2. SETMELANOTIDE [Suspect]
     Active Substance: SETMELANOTIDE
     Dosage: 2 MILLIGRAM, QD
     Route: 058
  3. SETMELANOTIDE [Suspect]
     Active Substance: SETMELANOTIDE
     Dosage: 3 MILLIGRAM, QD
     Route: 058
  4. SETMELANOTIDE [Suspect]
     Active Substance: SETMELANOTIDE
     Dosage: 2 MILLIGRAM, QD
     Route: 058
     Dates: start: 20221004
  5. SETMELANOTIDE [Suspect]
     Active Substance: SETMELANOTIDE
     Dosage: 3 MILLIGRAM, QD
     Route: 058
  6. SETMELANOTIDE [Suspect]
     Active Substance: SETMELANOTIDE
     Dosage: 3 MILLIGRAM, QD
     Route: 058
  7. ENALAPRIL [Concomitant]
     Active Substance: ENALAPRIL
     Indication: Product used for unknown indication
     Dosage: UNK UNK
     Route: 065

REACTIONS (28)
  - Croup infectious [Not Recovered/Not Resolved]
  - Faecaloma [Recovered/Resolved]
  - Pneumonia [Recovering/Resolving]
  - Abdominal pain [Recovered/Resolved]
  - Back pain [Recovered/Resolved]
  - Constipation [Recovered/Resolved]
  - Therapy interrupted [Unknown]
  - Surgery [Unknown]
  - Hunger [Recovering/Resolving]
  - Rhinorrhoea [Recovering/Resolving]
  - Asthma [Not Recovered/Not Resolved]
  - Irritability [Not Recovered/Not Resolved]
  - Somnolence [Unknown]
  - Viral infection [Not Recovered/Not Resolved]
  - Weight increased [Not Recovered/Not Resolved]
  - Product dose omission issue [Unknown]
  - Increased appetite [Recovered/Resolved]
  - Lung disorder [Not Recovered/Not Resolved]
  - Therapeutic response shortened [Unknown]
  - Burnout syndrome [Unknown]
  - Gastrointestinal motility disorder [Not Recovered/Not Resolved]
  - Product dose omission in error [Recovered/Resolved]
  - Cough [Unknown]
  - Asthenia [Unknown]
  - Fatigue [Unknown]
  - Injection site nodule [Recovered/Resolved]
  - Skin discolouration [Unknown]
  - Vomiting [Recovered/Resolved]

NARRATIVE: CASE EVENT DATE: 20220821
